FAERS Safety Report 12841054 (Version 1)
Quarter: 2016Q4

REPORT INFORMATION
  Report Type: Spontaneous
  Country: JP (occurrence: JP)
  Receive Date: 20161012
  Receipt Date: 20161012
  Transmission Date: 20170207
  Serious: Yes (Other)
  Sender: FDA-Public Use
  Company Number: JP-OTSUKA-JP-2012-16240

PATIENT
  Age: 48 Year
  Sex: Female
  Weight: 86 kg

DRUGS (12)
  1. PLETAAL OD TABLETS 50MG [Suspect]
     Active Substance: CILOSTAZOL
     Indication: LACUNAR INFARCTION
     Dosage: 200 MG, QD
     Route: 048
     Dates: start: 2006
  2. PLETAAL OD TABLETS 50MG [Suspect]
     Active Substance: CILOSTAZOL
     Indication: ARTERIOSCLEROSIS
  3. PIOGLITAZONE. [Concomitant]
     Active Substance: PIOGLITAZONE
     Indication: PRODUCT USED FOR UNKNOWN INDICATION
     Dosage: 15 MG, QD
     Route: 048
     Dates: start: 2007
  4. ETHYL ICOSAPENTATE [Concomitant]
     Active Substance: ICOSAPENT ETHYL
     Indication: PRODUCT USED FOR UNKNOWN INDICATION
     Dosage: 1800 ?G, QD
     Route: 065
  5. TELMISARTAN. [Concomitant]
     Active Substance: TELMISARTAN
     Indication: HYPERTENSION
     Dosage: 80 MG, QD
     Route: 048
     Dates: start: 2006
  6. INSULIN ASPART [Concomitant]
     Active Substance: INSULIN ASPART
     Indication: DIABETES MELLITUS MANAGEMENT
     Dosage: 15 IU, QD
     Route: 058
  7. ATORVASTATIN [Concomitant]
     Active Substance: ATORVASTATIN
     Indication: LIPIDS ABNORMAL
     Dosage: 10 MG, QD
     Route: 048
     Dates: start: 2006
  8. ACARBOSE. [Concomitant]
     Active Substance: ACARBOSE
     Dosage: 150 MG, QD
     Route: 048
     Dates: start: 2006
  9. PLETAAL POWDER 20% [Suspect]
     Active Substance: CILOSTAZOL
     Indication: LACUNAR INFARCTION
     Dosage: 200 MG, UNK
     Route: 048
     Dates: start: 2006
  10. CILNIDIPINE [Concomitant]
     Active Substance: CILNIDIPINE
     Indication: HYPERTENSION
     Dosage: 20 MG, QD
     Route: 048
     Dates: start: 2006
  11. FUROSEMIDE. [Concomitant]
     Active Substance: FUROSEMIDE
     Indication: GENERALISED OEDEMA
     Dosage: UNK
     Route: 042
  12. ACARBOSE. [Concomitant]
     Active Substance: ACARBOSE
     Indication: DIABETES MELLITUS MANAGEMENT
     Dosage: UNK
     Route: 048

REACTIONS (1)
  - Vitreous haemorrhage [Unknown]
